FAERS Safety Report 10080344 (Version 1)
Quarter: 2014Q2

REPORT INFORMATION
  Report Type: Report from Study
  Country: NL (occurrence: NL)
  Receive Date: 20140415
  Receipt Date: 20140415
  Transmission Date: 20141212
  Serious: Yes (Death)
  Sender: FDA-Public Use
  Company Number: PHHY2013NL156292

PATIENT
  Age: 72 Year
  Sex: Female

DRUGS (2)
  1. SANDOSTATIN LAR [Suspect]
     Indication: PANCREATIC NEUROENDOCRINE TUMOUR
     Dosage: 1 X 20 MG, ONCE PER 4 WEEKS
     Dates: start: 20081110
  2. SANDOSTATIN LAR [Suspect]
     Dosage: 1 X 20 MG, ONCE PER 4 WEEKS
     Dates: start: 20130104

REACTIONS (1)
  - Death [Fatal]
